FAERS Safety Report 8393089-9 (Version None)
Quarter: 2012Q2

REPORT INFORMATION
  Report Type: 
  Country: None (occurrence: None)
  Receive Date: 20120529
  Receipt Date: 20120415
  Transmission Date: 20120825
  Serious: No
  Sender: FDA-Public Use
  Company Number: US-ABBOTT-12P-163-0926117-00

PATIENT
  Sex: Male
  Weight: 96.248 kg

DRUGS (5)
  1. VITAMIN D [Concomitant]
     Indication: VITAMIN SUPPLEMENTATION
  2. VITAMIN B COMPLEX CAP [Concomitant]
     Indication: VITAMIN SUPPLEMENTATION
  3. MULTI-VITAMIN [Concomitant]
     Indication: VITAMIN SUPPLEMENTATION
  4. ANDROGEL [Suspect]
     Indication: BLOOD TESTOSTERONE DECREASED
     Dosage: 2 PUMP ACTUATIONS
     Route: 061
     Dates: start: 20120101, end: 20120201
  5. FISH OIL [Concomitant]
     Indication: SUPPLEMENTATION THERAPY

REACTIONS (1)
  - BLOOD TESTOSTERONE DECREASED [None]
